FAERS Safety Report 18326560 (Version 1)
Quarter: 2020Q3

REPORT INFORMATION
  Report Type: Spontaneous
  Country: PT (occurrence: PT)
  Receive Date: 20200930
  Receipt Date: 20200930
  Transmission Date: 20201103
  Serious: Yes (Other)
  Sender: FDA-Public Use
  Company Number: PT-SUN PHARMACEUTICAL INDUSTRIES LTD-2020R1-262399

PATIENT
  Age: 22 Month
  Sex: Female

DRUGS (2)
  1. ASPIRIN. [Suspect]
     Active Substance: ASPIRIN
     Indication: PYREXIA
     Dosage: UNK
     Route: 065
  2. IMMUNOGLOBULIN [Concomitant]
     Indication: KAWASAKI^S DISEASE
     Dosage: 2 G/KG
     Route: 042

REACTIONS (1)
  - Disease recurrence [Recovered/Resolved]
